FAERS Safety Report 25068536 (Version 2)
Quarter: 2025Q3

REPORT INFORMATION
  Report Type: Spontaneous
  Country: US (occurrence: US)
  Receive Date: 20250312
  Receipt Date: 20250725
  Transmission Date: 20251020
  Serious: Yes (Hospitalization)
  Sender: AUROBINDO
  Company Number: US-MLMSERVICE-20250219-PI412431-00044-1

PATIENT
  Age: 16 Year
  Sex: Male
  Weight: 59.1 kg

DRUGS (6)
  1. ALPRAZOLAM [Suspect]
     Active Substance: ALPRAZOLAM
     Indication: Anxiety
     Route: 048
  2. ALPRAZOLAM [Suspect]
     Active Substance: ALPRAZOLAM
     Indication: Hallucination, auditory
     Route: 048
  3. LORAZEPAM [Suspect]
     Active Substance: LORAZEPAM
     Indication: Anxiety
     Route: 065
  4. LORAZEPAM [Suspect]
     Active Substance: LORAZEPAM
     Indication: Depression
  5. HYDROCODONE [Suspect]
     Active Substance: HYDROCODONE
     Indication: Anxiety
     Route: 065
  6. HYDROCODONE [Suspect]
     Active Substance: HYDROCODONE
     Indication: Depression

REACTIONS (5)
  - Bradycardia [Unknown]
  - Mental status changes [Unknown]
  - Overdose [Unknown]
  - Self-medication [Unknown]
  - Intentional product misuse [Unknown]
